FAERS Safety Report 6644576-2 (Version None)
Quarter: 2010Q1

REPORT INFORMATION
  Report Type: 
  Country: None (occurrence: None)
  Receive Date: 20100319
  Receipt Date: 20100319
  Transmission Date: 20100710
  Serious: No
  Sender: FDA-Public Use
  Company Number: None

PATIENT

DRUGS (1)
  1. EXELON [Suspect]
     Indication: DEMENTIA
     Dosage: DAILY
     Dates: start: 20090310, end: 20090314

REACTIONS (2)
  - CEREBROVASCULAR ACCIDENT [None]
  - DRUG INTERACTION [None]
